FAERS Safety Report 4322784-3 (Version None)
Quarter: 2004Q1

REPORT INFORMATION
  Report Type: 
  Country: None (occurrence: None)
  Receive Date: 20040324
  Receipt Date: 20040312
  Transmission Date: 20041129
  Serious: Yes (Hospitalization, Other)
  Sender: FDA-Public Use
  Company Number: US-BRISTOL-MYERS SQUIBB COMPANY-12531513

PATIENT
  Age: 46 Year
  Sex: Female
  Weight: 69 kg

DRUGS (7)
  1. CARBOPLATIN [Suspect]
     Indication: PERITONEAL CARCINOMA
     Route: 042
     Dates: start: 20021004, end: 20040101
  2. TAXOL [Suspect]
     Indication: PERITONEAL CARCINOMA
     Route: 042
     Dates: start: 20021004, end: 20040101
  3. BENADRYL [Concomitant]
     Indication: PREMEDICATION
  4. PEPCID [Concomitant]
     Indication: PREMEDICATION
  5. DEXAMETHASONE [Concomitant]
     Indication: PREMEDICATION
  6. MULTIVITAMIN [Concomitant]
  7. HERBAL ONT [Concomitant]

REACTIONS (10)
  - ABDOMINAL NEOPLASM [None]
  - ARTHRALGIA [None]
  - BONE PAIN [None]
  - DEMYELINATION [None]
  - DRUG EFFECT DECREASED [None]
  - GASTROINTESTINAL DISORDER [None]
  - LUPUS-LIKE SYNDROME [None]
  - OVARIAN CANCER [None]
  - RENAL PAIN [None]
  - TRANSIENT ISCHAEMIC ATTACK [None]
